FAERS Safety Report 24932898 (Version 1)
Quarter: 2025Q1

REPORT INFORMATION
  Report Type: Spontaneous
  Country: EG (occurrence: EG)
  Receive Date: 20250205
  Receipt Date: 20250205
  Transmission Date: 20250409
  Serious: Yes (Hospitalization, Other)
  Sender: Haleon PLC
  Company Number: EG-002147023-NVSC2025EG017714

PATIENT
  Age: 55 Year
  Sex: Female

DRUGS (4)
  1. VOLTAREN [Suspect]
     Active Substance: DICLOFENAC SODIUM
     Indication: Osteoarthritis
  2. DICLOFENAC POTASSIUM\METHOCARBAMOL [Suspect]
     Active Substance: DICLOFENAC POTASSIUM\METHOCARBAMOL
     Indication: Osteoarthritis
     Route: 048
  3. ASPIRIN [Suspect]
     Active Substance: ASPIRIN
     Indication: Osteoarthritis
     Route: 048
  4. LORNOXICAM [Suspect]
     Active Substance: LORNOXICAM
     Indication: Osteoarthritis
     Route: 048

REACTIONS (3)
  - Haematemesis [Recovered/Resolved]
  - Peptic ulcer [Not Recovered/Not Resolved]
  - Melaena [Not Recovered/Not Resolved]
